FAERS Safety Report 9292433 (Version 1)
Quarter: 2013Q2

REPORT INFORMATION
  Report Type: Spontaneous
  Country: US (occurrence: US)
  Receive Date: 20130516
  Receipt Date: 20130516
  Transmission Date: 20140414
  Serious: Yes (Other)
  Sender: FDA-Public Use
  Company Number: US-PERRIGO-13US005023

PATIENT
  Age: 38 Year
  Sex: Female

DRUGS (7)
  1. LORAZEPAM CONCENTRATE RX 2 MG/ML 1J9 [Suspect]
     Indication: ALCOHOL WITHDRAWAL SYNDROME
     Dosage: UNKNOWN
     Route: 048
  2. LORAZEPAM [Suspect]
     Indication: ALCOHOL WITHDRAWAL SYNDROME
     Dosage: UNKNOWN, UNKNOWN
     Route: 042
  3. MIDAZOLAM [Suspect]
     Indication: ALCOHOL WITHDRAWAL SYNDROME
     Dosage: UNKNOWN, UNKNOWN
     Route: 042
  4. PROPOFOL [Concomitant]
     Indication: SEDATION
     Dosage: UNKNOWN, UNKNOWN
     Route: 041
  5. PHENOBARBITAL [Concomitant]
     Indication: ALCOHOL WITHDRAWAL SYNDROME
     Dosage: 100 MG, Q8H
     Route: 048
  6. CLONIDINE [Concomitant]
     Indication: AGITATION
     Dosage: UNKNOWN, UNKNOWN
     Route: 065
  7. HALOPERIDOL [Concomitant]
     Indication: AGITATION
     Dosage: UNKNOWN, UNKNOWN
     Route: 065

REACTIONS (2)
  - Delirium [Recovered/Resolved]
  - Agitation [Recovered/Resolved]
